FAERS Safety Report 12549901 (Version 1)
Quarter: 2016Q3

REPORT INFORMATION
  Report Type: Spontaneous
  Country: US (occurrence: US)
  Receive Date: 20160712
  Receipt Date: 20160712
  Transmission Date: 20161109
  Serious: Yes (Other)
  Sender: FDA-Public Use
  Company Number: US-PFIZER INC-2016338543

PATIENT
  Age: 59 Year
  Sex: Male
  Weight: 77.11 kg

DRUGS (6)
  1. B1 [Concomitant]
     Indication: VITAMIN B1 DEFICIENCY
     Dosage: 100 MG, 1X/DAY
     Route: 048
  2. CALCIUM [Concomitant]
     Active Substance: CALCIUM
     Indication: SUPPLEMENTATION THERAPY
     Dosage: ONE CHEW A DAY
  3. FOLIC ACID. [Concomitant]
     Active Substance: FOLIC ACID
     Indication: SUPPLEMENTATION THERAPY
     Dosage: 100 MG, 1X/DAY
     Route: 048
  4. NAPROXEN. [Concomitant]
     Active Substance: NAPROXEN
     Indication: ARTHRALGIA
     Dosage: 500 MG, AS NEEDED
     Route: 048
  5. TOPIRAMATE. [Concomitant]
     Active Substance: TOPIRAMATE
     Dosage: 100 MG, 2X/DAY
     Route: 048
  6. LYRICA [Suspect]
     Active Substance: PREGABALIN
     Indication: NERVE INJURY
     Dosage: 300 MG, 2X/DAY
     Route: 048
     Dates: end: 201604

REACTIONS (6)
  - Pre-existing condition improved [Unknown]
  - Weight decreased [Recovering/Resolving]
  - Abasia [Recovered/Resolved]
  - Pain [Recovering/Resolving]
  - Condition aggravated [Recovering/Resolving]
  - Therapeutic response unexpected [Unknown]
